FAERS Safety Report 7404302-6 (Version None)
Quarter: 2011Q2

REPORT INFORMATION
  Report Type: 
  Country: None (occurrence: None)
  Receive Date: 20110408
  Receipt Date: 20110329
  Transmission Date: 20111010
  Serious: Yes (Other)
  Sender: FDA-Public Use
  Company Number: US-JNJFOC-20110402169

PATIENT
  Age: 50 Year
  Sex: Male

DRUGS (1)
  1. NICORETTE WHITE ICE 2 MG [Suspect]
     Indication: SMOKING CESSATION THERAPY
     Route: 048

REACTIONS (3)
  - NICOTINE DEPENDENCE [None]
  - MUSCLE SPASMS [None]
  - INTENTIONAL DRUG MISUSE [None]
